FAERS Safety Report 6959518-X (Version None)
Quarter: 2010Q3

REPORT INFORMATION
  Report Type: 
  Country: None (occurrence: None)
  Receive Date: 20100831
  Receipt Date: 20100830
  Transmission Date: 20110219
  Serious: Yes (Other)
  Sender: FDA-Public Use
  Company Number: US-BRISTOL-MYERS SQUIBB COMPANY-15259583

PATIENT
  Sex: Female

DRUGS (5)
  1. ABILIFY [Suspect]
  2. CELEXA [Concomitant]
  3. NEURONTIN [Concomitant]
  4. THORAZINE [Concomitant]
  5. NORTRIPTYLINE HCL [Concomitant]

REACTIONS (3)
  - DYSKINESIA [None]
  - LIP SWELLING [None]
  - RESTLESSNESS [None]
